FAERS Safety Report 25765811 (Version 1)
Quarter: 2025Q3

REPORT INFORMATION
  Report Type: Spontaneous
  Country: US (occurrence: US)
  Receive Date: 20250905
  Receipt Date: 20250905
  Transmission Date: 20251021
  Serious: No
  Sender: DOMPE FARMACEUTICI
  Company Number: US-FARMAPROD-202407-2467

PATIENT
  Sex: Female

DRUGS (14)
  1. OXERVATE [Suspect]
     Active Substance: CENEGERMIN-BKBJ
     Indication: Neurotrophic keratopathy
     Route: 047
     Dates: start: 20240617
  2. ALEVE [Concomitant]
     Active Substance: NAPROXEN SODIUM
  3. ADVIL [Concomitant]
     Active Substance: IBUPROFEN
  4. MAGNESIUM [Concomitant]
     Active Substance: MAGNESIUM
  5. NOVOLOG [Concomitant]
     Active Substance: INSULIN ASPART
  6. TOPIRAMATE [Concomitant]
     Active Substance: TOPIRAMATE
  7. ATORVASTATIN CALCIUM [Concomitant]
     Active Substance: ATORVASTATIN CALCIUM
  8. LISINOPRIL [Concomitant]
     Active Substance: LISINOPRIL
  9. LEVOTHYROXINE SODIUM [Concomitant]
     Active Substance: LEVOTHYROXINE SODIUM
  10. RESTASIS [Concomitant]
     Active Substance: CYCLOSPORINE
  11. GENTEAL TEARS SEVERE [Concomitant]
     Active Substance: HYPROMELLOSE 2910 (4000 MPA.S)
  12. SYSTANE (HYPROMELLOSE 2910 (4000 MPA.S)) [Concomitant]
     Active Substance: HYPROMELLOSE 2910 (4000 MPA.S)
  13. KLARITY [Concomitant]
  14. HAIR, SKIN, AND NAILS [Concomitant]

REACTIONS (2)
  - Eye pain [Not Recovered/Not Resolved]
  - Eye irritation [Unknown]
